FAERS Safety Report 7767720-2 (Version None)
Quarter: 2011Q3

REPORT INFORMATION
  Report Type: 
  Country: None (occurrence: None)
  Receive Date: 20110922
  Receipt Date: 20110916
  Transmission Date: 20111222
  Serious: Yes (Death, Hospitalization)
  Sender: FDA-Public Use
  Company Number: FR-PFIZER INC-2011219620

PATIENT
  Age: 85 Year
  Sex: Female

DRUGS (8)
  1. ZYVOX [Suspect]
     Indication: STAPHYLOCOCCAL INFECTION
     Dosage: 600 MG, 2X/DAY
     Dates: start: 20110506, end: 20110524
  2. ASPIRIN [Concomitant]
     Dosage: 1 DF, 1X/DAY
     Dates: end: 20110524
  3. BISOPROLOL FUMARATE [Concomitant]
     Dosage: 1 DF, 1X/DAY
     Dates: end: 20110524
  4. ATORVASTATIN CALCIUM [Concomitant]
     Dosage: 1 DF, 1X/DAY
     Dates: end: 20110524
  5. EUPRESSYL [Concomitant]
     Dosage: 3 DF PER DAY
     Dates: end: 20110524
  6. NEXIUM [Concomitant]
     Dosage: 1 DF, 1X/DAY
     Dates: end: 20110524
  7. PERINDOPRIL ERBUMINE [Concomitant]
     Dosage: 1 DF, 1X/DAY
     Dates: end: 20110524
  8. CALCIUM CARBONATE [Concomitant]
     Dosage: 2 DF PER DAY
     Dates: end: 20110524

REACTIONS (5)
  - HYPERLACTACIDAEMIA [None]
  - VOMITING [None]
  - PANCREATITIS [None]
  - CYTOLYTIC HEPATITIS [None]
  - ILL-DEFINED DISORDER [None]
